FAERS Safety Report 5550662-0 (Version None)
Quarter: 2007Q4

REPORT INFORMATION
  Report Type: 
  Country: None (occurrence: None)
  Receive Date: 20071212
  Receipt Date: 20071130
  Transmission Date: 20080405
  Serious: Yes (Other)
  Sender: FDA-Public Use
  Company Number: US-BRACCO-BDI-010639

PATIENT
  Sex: Female

DRUGS (1)
  1. RUBIDIUM-81 INJ [Suspect]
     Route: 042
     Dates: start: 20071130, end: 20071130

REACTIONS (1)
  - PETIT MAL EPILEPSY [None]
